FAERS Safety Report 16542294 (Version 1)
Quarter: 2019Q3

REPORT INFORMATION
  Report Type: Spontaneous
  Country: US (occurrence: US)
  Receive Date: 20190708
  Receipt Date: 20190708
  Transmission Date: 20191004
  Serious: Yes (Hospitalization)
  Sender: FDA-Public Use
  Company Number: PHEH2019US028042

PATIENT
  Age: 57 Year
  Sex: Female

DRUGS (2)
  1. MEKINIST [Suspect]
     Active Substance: TRAMETINIB DIMETHYL SULFOXIDE
     Indication: THYROID CANCER
     Dosage: 2 MG, QD
     Route: 048
     Dates: start: 20190612
  2. TAFINLAR [Suspect]
     Active Substance: DABRAFENIB MESYLATE
     Indication: THYROID CANCER
     Dosage: 1500 MG, BID
     Route: 048
     Dates: start: 20190612

REACTIONS (10)
  - Confusional state [Not Recovered/Not Resolved]
  - Anxiety [Unknown]
  - Sleep terror [Unknown]
  - Thinking abnormal [Unknown]
  - Decreased appetite [Unknown]
  - Nausea [Not Recovered/Not Resolved]
  - Gait inability [Unknown]
  - Incorrect dose administered [Unknown]
  - Paranoia [Unknown]
  - Asthenia [Unknown]

NARRATIVE: CASE EVENT DATE: 20190613
